FAERS Safety Report 12442259 (Version 1)
Quarter: 2016Q2

REPORT INFORMATION
  Report Type: Spontaneous
  Country: US (occurrence: US)
  Receive Date: 20160607
  Receipt Date: 20160607
  Transmission Date: 20160815
  Serious: Yes (Hospitalization)
  Sender: FDA-Public Use
  Company Number: US-DSJP-DSU-2015-134084

PATIENT
  Sex: Female
  Weight: 109.3 kg

DRUGS (1)
  1. BENICAR [Suspect]
     Active Substance: OLMESARTAN MEDOXOMIL
     Indication: HYPERTENSION
     Dosage: UNK
     Dates: start: 2009, end: 2014

REACTIONS (2)
  - Malabsorption [Unknown]
  - Renal failure [Unknown]

NARRATIVE: CASE EVENT DATE: 2012
